FAERS Safety Report 6643228-2 (Version None)
Quarter: 2010Q1

REPORT INFORMATION
  Report Type: 
  Country: None (occurrence: None)
  Receive Date: 20100319
  Receipt Date: 20100318
  Transmission Date: 20100710
  Serious: Yes (Life-Threatening, Hospitalization)
  Sender: FDA-Public Use
  Company Number: PHHO2010GB01289

PATIENT
  Sex: Male
  Weight: 94 kg

DRUGS (9)
  1. ZOLEDRONATE T29581+SOLINJ+BM [Suspect]
     Indication: METASTASES TO BONE
     Dosage: 4 MG, UNK
     Route: 042
     Dates: start: 20090812, end: 20100209
  2. VITAMIN D [Concomitant]
  3. CALCIUM [Concomitant]
  4. HORMONES [Concomitant]
     Dosage: 10.8 MG, UNK
     Route: 058
     Dates: start: 20090522, end: 20091229
  5. IBUPROFEN [Concomitant]
  6. FENTANYL [Concomitant]
  7. GLIMEPIRIDE [Concomitant]
     Dosage: UNK
  8. OXYCODONE HCL [Concomitant]
  9. TRAMADOL HCL [Concomitant]

REACTIONS (5)
  - ANAEMIA [None]
  - BONE MARROW FAILURE [None]
  - DYSPNOEA [None]
  - PROSTATE CANCER [None]
  - RENAL IMPAIRMENT [None]
